FAERS Safety Report 11976728 (Version 1)
Quarter: 2016Q1

REPORT INFORMATION
  Report Type: Spontaneous
  Country: US (occurrence: US)
  Receive Date: 20160129
  Receipt Date: 20160129
  Transmission Date: 20160526
  Serious: Yes (Other)
  Sender: FDA-Public Use
  Company Number: US-CIPLA LTD.-2016US00836

PATIENT

DRUGS (2)
  1. IRINOTECAN [Suspect]
     Active Substance: IRINOTECAN
     Indication: CENTRAL NERVOUS SYSTEM NEOPLASM
     Dosage: EVERY 2 WEEKS (1 COURSE = 4 WEEKS)
     Route: 065
  2. BEVACIZUMAB [Suspect]
     Active Substance: BEVACIZUMAB
     Indication: CENTRAL NERVOUS SYSTEM NEOPLASM
     Dosage: 10 MG/KG, DOSES GIVEN TWO WEEKS APART
     Route: 042

REACTIONS (1)
  - Proteinuria [Unknown]
